FAERS Safety Report 24211552 (Version 3)
Quarter: 2024Q3

REPORT INFORMATION
  Report Type: Spontaneous
  Country: FR (occurrence: FR)
  Receive Date: 20240814
  Receipt Date: 20240925
  Transmission Date: 20241017
  Serious: Yes (Hospitalization, Other)
  Sender: SANDOZ
  Company Number: FR-AFSSAPS-TO2024001501

PATIENT
  Age: 53 Year
  Sex: Male
  Weight: 100 kg

DRUGS (5)
  1. PILOCARPINE HYDROCHLORIDE [Suspect]
     Active Substance: PILOCARPINE HYDROCHLORIDE
     Indication: Glaucoma
     Dosage: 4 DOSAGE FORM, QH, EYE DROPS (TOUS LES 1/4 D^HEURE PENDANT 1H) (OPHTHALMOLOGICAL (IN THE EYE)
     Route: 047
     Dates: start: 20240627, end: 20240627
  2. PILOCARPINE HYDROCHLORIDE [Suspect]
     Active Substance: PILOCARPINE HYDROCHLORIDE
     Indication: Glaucoma surgery
  3. INDOMETHACIN [Suspect]
     Active Substance: INDOMETHACIN
     Indication: Glaucoma surgery
     Dosage: 3 DOSAGE FORM, QD (1 GOUTTE 3X/JOUR)
     Route: 047
     Dates: start: 20240627, end: 20240718
  4. IOPIDINE [Suspect]
     Active Substance: APRACLONIDINE HYDROCHLORIDE
     Indication: Glaucoma surgery
     Dosage: 1 DOSAGE FORM (1 GOUTTE 1HEURE APR?S)
     Route: 047
     Dates: start: 20240627, end: 20240627
  5. IOPIDINE [Suspect]
     Active Substance: APRACLONIDINE HYDROCHLORIDE
     Dosage: 1 DOSAGE FORM (1 GOUTTE 1HEURE APR?S)
     Route: 047
     Dates: start: 20240627, end: 20240627

REACTIONS (1)
  - Retinal detachment [Recovered/Resolved]

NARRATIVE: CASE EVENT DATE: 20240629
